FAERS Safety Report 9023817 (Version 4)
Quarter: 2013Q2

REPORT INFORMATION
  Report Type: Report from Study
  Country: US (occurrence: US)
  Receive Date: 20130121
  Receipt Date: 20130424
  Transmission Date: 20140414
  Serious: Yes (Other)
  Sender: FDA-Public Use
  Company Number: US-ABBOTT-13P-163-1036239-00

PATIENT
  Age: 50 Year
  Sex: Male
  Weight: 83.99 kg

DRUGS (3)
  1. HUMIRA [Suspect]
     Indication: ANKYLOSING SPONDYLITIS
     Dates: start: 201106
  2. ALLOPURINOL [Concomitant]
     Indication: NEPHROLITHIASIS
  3. UROCIT [Concomitant]
     Indication: NEPHROLITHIASIS

REACTIONS (3)
  - Foot deformity [Not Recovered/Not Resolved]
  - Hyperaesthesia [Unknown]
  - Herpes zoster [Not Recovered/Not Resolved]
